FAERS Safety Report 17884995 (Version 1)
Quarter: 2020Q2

REPORT INFORMATION
  Report Type: Spontaneous
  Country: KW (occurrence: KW)
  Receive Date: 20200611
  Receipt Date: 20200611
  Transmission Date: 20200714
  Serious: Yes (Other)
  Sender: FDA-Public Use
  Company Number: KW-ABBVIE-20K-091-3425996-00

PATIENT
  Age: 19 Year
  Sex: Male

DRUGS (1)
  1. HUMIRA [Suspect]
     Active Substance: ADALIMUMAB
     Indication: PSORIATIC ARTHROPATHY
     Route: 058
     Dates: start: 20180601, end: 202004

REACTIONS (9)
  - Lymphocyte count abnormal [Unknown]
  - COVID-19 [Recovered/Resolved]
  - Liver function test abnormal [Unknown]
  - Troponin increased [Unknown]
  - Fibrin degradation products increased [Unknown]
  - Viral load abnormal [Unknown]
  - White blood cell count abnormal [Unknown]
  - Blood lactate dehydrogenase abnormal [Unknown]
  - Antibody test abnormal [Unknown]

NARRATIVE: CASE EVENT DATE: 20200401
